FAERS Safety Report 25611087 (Version 1)
Quarter: 2025Q3

REPORT INFORMATION
  Report Type: Spontaneous
  Country: US (occurrence: None)
  Receive Date: 20250725
  Receipt Date: 20250725
  Transmission Date: 20251021
  Serious: Yes (Other)
  Sender: FDA-CTU
  Company Number: None

PATIENT
  Age: 61 Year
  Sex: Female
  Weight: 69.8 kg

DRUGS (2)
  1. METOPROLOL SUCCINATE [Suspect]
     Active Substance: METOPROLOL SUCCINATE
     Indication: Hypertension
     Dosage: 50 MG DAILY ORAL
     Route: 048
     Dates: start: 20250715, end: 20250721
  2. Amlodipine-benazepril 5-10mg [Concomitant]
     Dates: start: 20240605

REACTIONS (2)
  - Hypotension [None]
  - Product quality issue [None]

NARRATIVE: CASE EVENT DATE: 20250717
